FAERS Safety Report 22930597 (Version 4)
Quarter: 2023Q4

REPORT INFORMATION
  Report Type: Report from Study
  Country: BR (occurrence: BR)
  Receive Date: 20230911
  Receipt Date: 20231007
  Transmission Date: 20240110
  Serious: No
  Sender: FDA-Public Use
  Company Number: BR-JNJFOC-20230850975

PATIENT
  Age: 60 Year
  Sex: Female

DRUGS (4)
  1. SIMPONI [Suspect]
     Active Substance: GOLIMUMAB
     Indication: Product used for unknown indication
     Dosage: STRENGTH: 50.00 MG / 0.50 ML
     Route: 058
     Dates: start: 20230606, end: 20230806
  2. SIMPONI [Suspect]
     Active Substance: GOLIMUMAB
  3. SIMPONI [Suspect]
     Active Substance: GOLIMUMAB
     Indication: Product used for unknown indication
     Dosage: STRENGTH: 50.00 MG / 0.50 ML
     Route: 058
  4. SIMPONI [Suspect]
     Active Substance: GOLIMUMAB

REACTIONS (6)
  - Product dose omission issue [Unknown]
  - Device deployment issue [Unknown]
  - Inflammation [Not Recovered/Not Resolved]
  - Osteitis [Not Recovered/Not Resolved]
  - Back pain [Not Recovered/Not Resolved]
  - Application site discolouration [Recovered/Resolved]

NARRATIVE: CASE EVENT DATE: 20230806
